FAERS Safety Report 25345582 (Version 1)
Quarter: 2025Q2

REPORT INFORMATION
  Report Type: Spontaneous
  Country: CN (occurrence: CN)
  Receive Date: 20250522
  Receipt Date: 20250522
  Transmission Date: 20250717
  Serious: Yes (Hospitalization, Other)
  Sender: GRANULES PHARMACEUTICALS INC
  Company Number: CN-GRANULES-CN-2025GRALIT00251

PATIENT
  Age: 45 Year
  Sex: Male

DRUGS (1)
  1. ACETAMINOPHEN [Suspect]
     Active Substance: ACETAMINOPHEN
     Indication: Nasal congestion
     Route: 048

REACTIONS (3)
  - Generalised bullous fixed drug eruption [Recovered/Resolved with Sequelae]
  - Product use in unapproved indication [Unknown]
  - Inappropriate schedule of product administration [Unknown]
